FAERS Safety Report 5838871-4 (Version None)
Quarter: 2008Q3

REPORT INFORMATION
  Report Type: 
  Country: None (occurrence: None)
  Receive Date: 20080804
  Receipt Date: 20080624
  Transmission Date: 20090109
  Serious: No
  Sender: FDA-Public Use
  Company Number: 2008US001652

PATIENT
  Age: 77 Year
  Sex: Female

DRUGS (1)
  1. LEXISCAN [Suspect]
     Indication: CARDIAC STRESS TEST
     Dosage: 0.08 MG/ML, IV DRIP
     Route: 041
     Dates: start: 20080623, end: 20080623

REACTIONS (1)
  - HYPOTENSION [None]
